FAERS Safety Report 9358434 (Version 2)
Quarter: 2013Q3

REPORT INFORMATION
  Report Type: Report from Study
  Country: US (occurrence: US)
  Receive Date: 20130620
  Receipt Date: 20130722
  Transmission Date: 20140515
  Serious: Yes (Hospitalization)
  Sender: FDA-Public Use
  Company Number: US-ACTELION-A-NJ2013-84792

PATIENT
  Age: 61 Year
  Sex: Female

DRUGS (3)
  1. TRACLEER [Suspect]
     Indication: PULMONARY ARTERIAL HYPERTENSION
     Dosage: UNK
     Route: 048
  2. COUMADIN [Concomitant]
  3. OXYGEN [Concomitant]

REACTIONS (9)
  - Chronic obstructive pulmonary disease [Unknown]
  - Dyspnoea [Unknown]
  - Bronchitis [Unknown]
  - Cardiac failure congestive [Unknown]
  - Hepatic enzyme increased [Unknown]
  - Weight decreased [Unknown]
  - Asthenia [Unknown]
  - Fatigue [Unknown]
  - Oxygen supplementation [Unknown]
